FAERS Safety Report 5953941-8 (Version None)
Quarter: 2008Q4

REPORT INFORMATION
  Report Type: 
  Country: None (occurrence: None)
  Receive Date: 20081114
  Receipt Date: 20081104
  Transmission Date: 20090506
  Serious: Yes (Other)
  Sender: FDA-Public Use
  Company Number: BR-PFIZER INC-2008090476

PATIENT
  Sex: Male
  Weight: 86 kg

DRUGS (5)
  1. LIPITOR [Suspect]
     Indication: BLOOD CHOLESTEROL INCREASED
     Route: 048
     Dates: start: 20081001, end: 20080101
  2. ALLOPURINOL [Concomitant]
  3. TRYPTANOL [Concomitant]
  4. AMLODIPINE MESILATE [Concomitant]
  5. RAMIPRIL [Concomitant]

REACTIONS (8)
  - ABASIA [None]
  - GROIN PAIN [None]
  - HEADACHE [None]
  - MUSCULOSKELETAL PAIN [None]
  - NECK PAIN [None]
  - PAIN IN EXTREMITY [None]
  - SENSORY DISTURBANCE [None]
  - SLEEP DISORDER [None]
